FAERS Safety Report 9463252 (Version 1)
Quarter: 2013Q3

REPORT INFORMATION
  Report Type: Report from Study
  Country: US (occurrence: US)
  Receive Date: 20130819
  Receipt Date: 20130819
  Transmission Date: 20140515
  Serious: Yes (Hospitalization)
  Sender: FDA-Public Use
  Company Number: US-ROCHE-1262131

PATIENT
  Age: 60 Year
  Sex: Female

DRUGS (5)
  1. LUCENTIS [Suspect]
     Indication: DIABETIC RETINOPATHY
     Route: 050
  2. LUCENTIS [Suspect]
     Indication: DIABETIC RETINAL OEDEMA
  3. INSULIN [Concomitant]
     Indication: DIABETES MELLITUS
  4. LIPITOR [Concomitant]
  5. LISINOPRIL [Concomitant]
     Indication: HYPERTENSION

REACTIONS (3)
  - Cerebrovascular accident [Recovered/Resolved]
  - Vitreous floaters [Recovered/Resolved]
  - Eye disorder [Recovered/Resolved]
